FAERS Safety Report 21171905 (Version 1)
Quarter: 2022Q3

REPORT INFORMATION
  Report Type: Spontaneous
  Country: FR (occurrence: None)
  Receive Date: 20220804
  Receipt Date: 20220804
  Transmission Date: 20221026
  Serious: Yes (Other)
  Sender: FDA-Public Use
  Company Number: 2022A272581

PATIENT
  Age: 82 Year
  Sex: Male

DRUGS (3)
  1. QUETIAPINE [Suspect]
     Active Substance: QUETIAPINE
     Indication: Dementia
     Dosage: 100.0MG UNKNOWN
     Route: 048
     Dates: end: 20220706
  2. OXAZEPAM [Concomitant]
     Active Substance: OXAZEPAM
     Route: 065
  3. LAMOTRIGINE [Concomitant]
     Active Substance: LAMOTRIGINE
     Route: 065

REACTIONS (7)
  - Plicated tongue [Recovered/Resolved]
  - Oral mucosal erythema [Recovered/Resolved]
  - General physical health deterioration [Recovered/Resolved]
  - Hypotension [Recovered/Resolved]
  - Tongue oedema [Recovered/Resolved]
  - Loss of consciousness [Recovered/Resolved]
  - Incorrect route of product administration [Recovered/Resolved]

NARRATIVE: CASE EVENT DATE: 20220706
